FAERS Safety Report 20321313 (Version 1)
Quarter: 2022Q1

REPORT INFORMATION
  Report Type: Spontaneous
  Country: US (occurrence: None)
  Receive Date: 20220110
  Receipt Date: 20220110
  Transmission Date: 20220424
  Serious: Yes (Death)
  Sender: FDA-Public Use
  Company Number: None

PATIENT
  Sex: Female

DRUGS (1)
  1. UDENYCA [Suspect]
     Active Substance: PEGFILGRASTIM-CBQV
     Indication: Pancreatic carcinoma
     Dosage: OTHER QUANTITY : 6MG/0.6ML;?FREQUENCY : AS DIRECTED; INJECT 1 SYRINGE UNDER THE SKIN (SUBCUTANEOUS
     Route: 058
     Dates: start: 20201216

REACTIONS (1)
  - Death [None]
